FAERS Safety Report 9756450 (Version 1)
Quarter: 2013Q4

REPORT INFORMATION
  Report Type: Spontaneous
  Country: US (occurrence: US)
  Receive Date: 20131213
  Receipt Date: 20131213
  Transmission Date: 20140711
  Serious: No
  Sender: FDA-Public Use
  Company Number: US-GLAXOSMITHKLINE-A1041496A

PATIENT
  Age: 49 Year
  Sex: Female

DRUGS (2)
  1. NICODERM CQ CLEAR 14MG [Suspect]
     Indication: EX-TOBACCO USER
     Dates: start: 20130909, end: 20130912
  2. UNSPECIFIED MEDICATIONS [Concomitant]

REACTIONS (7)
  - Rash papular [Not Recovered/Not Resolved]
  - Application site rash [Not Recovered/Not Resolved]
  - Application site reaction [Not Recovered/Not Resolved]
  - Application site erythema [Unknown]
  - Application site reaction [Unknown]
  - Application site rash [Unknown]
  - Application site papules [Unknown]
